FAERS Safety Report 7121025-1 (Version None)
Quarter: 2010Q4

REPORT INFORMATION
  Report Type: 
  Country: None (occurrence: None)
  Receive Date: 20101124
  Receipt Date: 20101109
  Transmission Date: 20110411
  Serious: Yes (Other)
  Sender: FDA-Public Use
  Company Number: US-CELGENEUS-163-21880-10111331

PATIENT
  Sex: Male

DRUGS (1)
  1. REVLIMID [Suspect]
     Indication: MYELOFIBROSIS
     Route: 048
     Dates: start: 20101001

REACTIONS (5)
  - ERECTILE DYSFUNCTION [None]
  - FATIGUE [None]
  - PYREXIA [None]
  - RENAL CANCER [None]
  - SPLEEN DISORDER [None]
